FAERS Safety Report 10047509 (Version 1)
Quarter: 2014Q1

REPORT INFORMATION
  Report Type: Spontaneous
  Country: JP (occurrence: JP)
  Receive Date: 20140331
  Receipt Date: 20140331
  Transmission Date: 20141002
  Serious: Yes (Life-Threatening)
  Sender: FDA-Public Use
  Company Number: JP-JNJFOC-20140313367

PATIENT
  Age: 81 Year
  Sex: Female
  Weight: 60 kg

DRUGS (9)
  1. XARELTO [Suspect]
     Indication: CEREBROVASCULAR ACCIDENT PROPHYLAXIS
     Route: 048
     Dates: start: 20140109, end: 20140205
  2. XARELTO [Suspect]
     Indication: ATRIAL FIBRILLATION
     Route: 048
     Dates: start: 20140109, end: 20140205
  3. PLAVIX [Suspect]
     Indication: PRODUCT USED FOR UNKNOWN INDICATION
     Route: 048
     Dates: start: 20140101, end: 20140204
  4. BAYASPIRIN [Concomitant]
     Route: 048
     Dates: start: 20140101
  5. CRESTOR [Concomitant]
     Route: 048
     Dates: start: 20140101
  6. NEXIUM [Concomitant]
     Route: 048
     Dates: start: 20140101
  7. RENIVACE [Concomitant]
     Route: 048
     Dates: start: 20140101
  8. MAINTATE [Concomitant]
     Route: 048
     Dates: start: 20140101
  9. LASIX [Concomitant]
     Route: 048
     Dates: start: 20140103

REACTIONS (1)
  - Interstitial lung disease [Recovering/Resolving]
